FAERS Safety Report 25665349 (Version 1)
Quarter: 2025Q3

REPORT INFORMATION
  Report Type: Spontaneous
  Country: US (occurrence: US)
  Receive Date: 20250811
  Receipt Date: 20250811
  Transmission Date: 20251020
  Serious: No
  Sender: ELI LILLY AND COMPANY
  Company Number: US-ELI_LILLY_AND_COMPANY-US202508008699

PATIENT
  Age: 75 Year
  Sex: Female

DRUGS (2)
  1. INSULIN LISPRO [Suspect]
     Active Substance: INSULIN LISPRO
     Indication: Type 2 diabetes mellitus
     Route: 058
     Dates: start: 2019
  2. INSULIN LISPRO [Suspect]
     Active Substance: INSULIN LISPRO
     Route: 058
     Dates: start: 2019

REACTIONS (7)
  - Accidental underdose [Unknown]
  - Contusion [Recovered/Resolved]
  - Pain in extremity [Recovered/Resolved]
  - Glycosylated haemoglobin decreased [Unknown]
  - Blood glucose decreased [Recovered/Resolved]
  - Visual impairment [Unknown]
  - Asthenopia [Unknown]

NARRATIVE: CASE EVENT DATE: 20250804
